FAERS Safety Report 15318649 (Version 1)
Quarter: 2018Q3

REPORT INFORMATION
  Report Type: Other
  Country: DE (occurrence: DE)
  Receive Date: 20180826
  Receipt Date: 20180826
  Transmission Date: 20181010
  Serious: Yes (Hospitalization, Other)
  Sender: FDA-Public Use
  Company Number: DE-DEXPHARM-20180621

PATIENT
  Age: 68 Year
  Sex: Female
  Weight: 49 kg

DRUGS (107)
  1. CERNEVIT [Concomitant]
     Active Substance: VITAMINS
     Dosage: UNK
     Dates: start: 20180406, end: 20180406
  2. FOLINIC ACID [Suspect]
     Active Substance: LEUCOVORIN
     Indication: ADENOCARCINOMA GASTRIC
     Dosage: UNK
     Route: 042
     Dates: start: 20170530, end: 20170530
  3. FOLINIC ACID [Suspect]
     Active Substance: LEUCOVORIN
     Indication: ADENOCARCINOMA GASTRIC
     Dosage: 636 UNK
     Route: 042
     Dates: start: 20170725, end: 20170725
  4. FOLINIC ACID [Suspect]
     Active Substance: LEUCOVORIN
     Indication: ADENOCARCINOMA GASTRIC
     Dosage: 636 UNK
     Route: 042
     Dates: start: 20170413, end: 20170413
  5. FOLINIC ACID [Suspect]
     Active Substance: LEUCOVORIN
     Indication: ADENOCARCINOMA GASTRIC
     Dosage: 636 MG
     Route: 042
     Dates: start: 20171004, end: 20171004
  6. FOLINIC ACID [Suspect]
     Active Substance: LEUCOVORIN
     Indication: ADENOCARCINOMA GASTRIC
     Dosage: 636 UNK
     Route: 042
     Dates: start: 20170711, end: 20170711
  7. OXALIPLATIN. [Suspect]
     Active Substance: OXALIPLATIN
     Indication: ADENOCARCINOMA GASTRIC
     Dosage: 636 UNK
     Route: 042
     Dates: start: 20170330, end: 20170330
  8. OXALIPLATIN. [Suspect]
     Active Substance: OXALIPLATIN
     Indication: ADENOCARCINOMA GASTRIC
     Dosage: 636 UNK
     Route: 042
     Dates: start: 20170427, end: 20170427
  9. FLUOROURACIL. [Suspect]
     Active Substance: FLUOROURACIL
     Indication: ADENOCARCINOMA GASTRIC
     Dosage: 3816 UNK
     Route: 042
     Dates: start: 20170627, end: 20170629
  10. FLUOROURACIL. [Suspect]
     Active Substance: FLUOROURACIL
     Indication: ADENOCARCINOMA GASTRIC
     Dosage: 3816 UNK
     Route: 042
     Dates: start: 20170808, end: 20170810
  11. FLUOROURACIL. [Suspect]
     Active Substance: FLUOROURACIL
     Indication: ADENOCARCINOMA GASTRIC
     Dosage: 3816 UNK
     Route: 042
     Dates: start: 20170511, end: 20170513
  12. FLUOROURACIL. [Suspect]
     Active Substance: FLUOROURACIL
     Indication: ADENOCARCINOMA GASTRIC
     Dosage: 636 UNK
     Route: 042
     Dates: start: 20170511, end: 20170511
  13. XARELTO [Concomitant]
     Active Substance: RIVAROXABAN
     Dosage: UNK
     Dates: start: 20170809
  14. FOLINIC ACID [Suspect]
     Active Substance: LEUCOVORIN
     Indication: ADENOCARCINOMA GASTRIC
     Dosage: 636 UNK
     Route: 042
     Dates: start: 20170919, end: 20170919
  15. OXALIPLATIN. [Suspect]
     Active Substance: OXALIPLATIN
     Indication: ADENOCARCINOMA GASTRIC
     Dosage: 636 UNK
     Route: 042
     Dates: start: 20170530, end: 20170530
  16. DICLOFENAC [Suspect]
     Active Substance: DICLOFENAC
     Dosage: UNK
  17. CLEXANE [Suspect]
     Active Substance: ENOXAPARIN SODIUM
     Dosage: UNK
  18. PERFALGAN [Suspect]
     Active Substance: ACETAMINOPHEN
     Dosage: UNK
  19. SYMBICORT [Concomitant]
     Active Substance: BUDESONIDE\FORMOTEROL FUMARATE DIHYDRATE
     Dosage: UNK
     Dates: start: 20170511
  20. FLUOROURACIL. [Suspect]
     Active Substance: FLUOROURACIL
     Indication: ADENOCARCINOMA GASTRIC
     Dosage: 636 MG
     Route: 042
     Dates: start: 20170711, end: 20170711
  21. FLUOROURACIL. [Suspect]
     Active Substance: FLUOROURACIL
     Indication: ADENOCARCINOMA GASTRIC
     Dosage: 636 MG, UNK
     Route: 042
     Dates: start: 20170822, end: 20170822
  22. FLUOROURACIL. [Suspect]
     Active Substance: FLUOROURACIL
     Indication: ADENOCARCINOMA GASTRIC
     Dosage: 3816 UNK
     Route: 042
     Dates: start: 20171128, end: 20171130
  23. FLUOROURACIL. [Suspect]
     Active Substance: FLUOROURACIL
     Indication: ADENOCARCINOMA GASTRIC
     Dosage: 3816 MG, UNK
     Route: 042
     Dates: start: 20180208, end: 20180210
  24. FLUOROURACIL. [Suspect]
     Active Substance: FLUOROURACIL
     Indication: ADENOCARCINOMA GASTRIC
     Dosage: 636 UNK
     Route: 042
     Dates: start: 20170530, end: 20170530
  25. FLUOROURACIL. [Suspect]
     Active Substance: FLUOROURACIL
     Indication: ADENOCARCINOMA GASTRIC
     Dosage: 3816 UNK
     Route: 042
     Dates: start: 20180125, end: 20180127
  26. LAXANS AL [Concomitant]
     Dosage: UNK
     Dates: start: 2007
  27. DUROGESIC SMAT [Concomitant]
     Active Substance: FENTANYL
     Dosage: UNK
     Dates: start: 20170221
  28. FLUOROURACIL. [Suspect]
     Active Substance: FLUOROURACIL
     Indication: ADENOCARCINOMA GASTRIC
     Dosage: 636 UNK
     Route: 042
     Dates: start: 20170613, end: 20170613
  29. FLUOROURACIL. [Suspect]
     Active Substance: FLUOROURACIL
     Indication: ADENOCARCINOMA GASTRIC
     Dosage: 636 UNK
     Route: 042
     Dates: start: 20180322, end: 20180324
  30. FLUOROURACIL. [Suspect]
     Active Substance: FLUOROURACIL
     Indication: ADENOCARCINOMA GASTRIC
     Dosage: 3816 UNK
     Route: 042
     Dates: start: 20170302, end: 20170304
  31. FOLINIC ACID [Suspect]
     Active Substance: LEUCOVORIN
     Indication: ADENOCARCINOMA GASTRIC
     Dosage: 636 UNK
     Route: 042
     Dates: start: 20170427, end: 20170427
  32. FOLINIC ACID [Suspect]
     Active Substance: LEUCOVORIN
     Indication: ADENOCARCINOMA GASTRIC
     Dosage: 636 MG, UNK
     Route: 042
     Dates: start: 20180405, end: 20180405
  33. METOCLOPRAMID [METOCLOPRAMIDE HYDROCHLORIDE] [Concomitant]
     Dosage: UNK
     Dates: start: 20180110
  34. OXALIPLATIN. [Suspect]
     Active Substance: OXALIPLATIN
     Indication: ADENOCARCINOMA GASTRIC
     Dosage: 636 UNK
     Route: 042
     Dates: start: 20170413, end: 20170413
  35. TRAMAL [Suspect]
     Active Substance: TRAMADOL
     Dosage: UNK
  36. RINGERS SOLUTION [Concomitant]
     Active Substance: CALCIUM CHLORIDE\POTASSIUM CHLORIDE\SODIUM CHLORIDE
     Dosage: UNK
     Dates: start: 20180406, end: 20180406
  37. ONDANSETRON [Concomitant]
     Active Substance: ONDANSETRON
     Dosage: UNK
     Dates: start: 20170217
  38. FLUOROURACIL. [Suspect]
     Active Substance: FLUOROURACIL
     Indication: ADENOCARCINOMA GASTRIC
     Dosage: 636 MG, UNK
     Route: 042
     Dates: start: 20171114, end: 20171114
  39. FLUOROURACIL. [Suspect]
     Active Substance: FLUOROURACIL
     Indication: ADENOCARCINOMA GASTRIC
     Dosage: 636 UNK
     Route: 042
     Dates: start: 20171017, end: 20171017
  40. FLUOROURACIL. [Suspect]
     Active Substance: FLUOROURACIL
     Indication: ADENOCARCINOMA GASTRIC
     Dosage: 636 UNK
     Route: 042
     Dates: start: 20170530, end: 20170601
  41. FLUOROURACIL. [Suspect]
     Active Substance: FLUOROURACIL
     Indication: ADENOCARCINOMA GASTRIC
     Dosage: 636 UNK
     Route: 042
     Dates: start: 20170808, end: 20170808
  42. FLUOROURACIL. [Suspect]
     Active Substance: FLUOROURACIL
     Indication: ADENOCARCINOMA GASTRIC
     Dosage: 636 UNK
     Route: 042
     Dates: start: 20170330, end: 20170330
  43. FLUOROURACIL. [Suspect]
     Active Substance: FLUOROURACIL
     Indication: ADENOCARCINOMA GASTRIC
     Dosage: 3816 UNK
     Route: 042
     Dates: start: 20170822, end: 20170824
  44. FLUOROURACIL. [Suspect]
     Active Substance: FLUOROURACIL
     Indication: ADENOCARCINOMA GASTRIC
     Dosage: 636 UNK
     Route: 042
     Dates: start: 20170919, end: 20170919
  45. FOLINIC ACID [Suspect]
     Active Substance: LEUCOVORIN
     Indication: ADENOCARCINOMA GASTRIC
     Dosage: 636 UNK
     Route: 042
     Dates: start: 20170627, end: 20170627
  46. FOLINIC ACID [Suspect]
     Active Substance: LEUCOVORIN
     Indication: ADENOCARCINOMA GASTRIC
     Dosage: 636 UNK
     Route: 042
     Dates: start: 20170316, end: 20170316
  47. FOLINIC ACID [Suspect]
     Active Substance: LEUCOVORIN
     Indication: ADENOCARCINOMA GASTRIC
     Dosage: 636 UNK
     Route: 042
     Dates: start: 20180308, end: 20180308
  48. FOLINIC ACID [Suspect]
     Active Substance: LEUCOVORIN
     Indication: ADENOCARCINOMA GASTRIC
     Dosage: 636 MG, UNK
     Route: 042
     Dates: start: 20170822, end: 20170822
  49. FOLINIC ACID [Suspect]
     Active Substance: LEUCOVORIN
     Indication: ADENOCARCINOMA GASTRIC
     Dosage: 636 MG, UNK
     Route: 042
     Dates: start: 20180222, end: 20180222
  50. OXALIPLATIN. [Suspect]
     Active Substance: OXALIPLATIN
     Indication: ADENOCARCINOMA GASTRIC
     Dosage: 636 UNK
     Route: 042
     Dates: start: 20170316, end: 20170316
  51. INNOHEP [Concomitant]
     Active Substance: TINZAPARIN SODIUM
     Dosage: UNK
     Dates: start: 20170424
  52. NOVAMINSULFON INJEKT [Suspect]
     Active Substance: METAMIZOLE SODIUM
     Indication: ABDOMINAL PAIN UPPER
     Dosage: UNK
     Route: 042
     Dates: start: 20180109
  53. FLUOROURACIL. [Suspect]
     Active Substance: FLUOROURACIL
     Indication: ADENOCARCINOMA GASTRIC
     Dosage: 636 UNK
     Route: 042
     Dates: start: 20171017, end: 20171019
  54. FLUOROURACIL. [Suspect]
     Active Substance: FLUOROURACIL
     Indication: ADENOCARCINOMA GASTRIC
     Dosage: 636 UNK
     Route: 042
     Dates: start: 20170613, end: 20170615
  55. FLUOROURACIL. [Suspect]
     Active Substance: FLUOROURACIL
     Indication: ADENOCARCINOMA GASTRIC
     Dosage: 636 UNK
     Route: 042
     Dates: start: 20170413, end: 20170413
  56. NEUROTRAT B12 [Concomitant]
     Dosage: UNK
     Dates: start: 20180125
  57. FOLINIC ACID [Suspect]
     Active Substance: LEUCOVORIN
     Indication: ADENOCARCINOMA GASTRIC
     Dosage: 636 UNK
     Route: 042
     Dates: start: 20171101, end: 20171101
  58. FOLINIC ACID [Suspect]
     Active Substance: LEUCOVORIN
     Indication: ADENOCARCINOMA GASTRIC
     Dosage: 636 UNK
     Route: 042
     Dates: start: 20170808, end: 20170808
  59. FOLINIC ACID [Suspect]
     Active Substance: LEUCOVORIN
     Indication: ADENOCARCINOMA GASTRIC
     Dosage: 636 UNK
     Route: 042
     Dates: start: 20171128, end: 20171128
  60. FOLINIC ACID [Suspect]
     Active Substance: LEUCOVORIN
     Indication: ADENOCARCINOMA GASTRIC
     Dosage: 636 UNK
     Route: 042
     Dates: start: 20180125, end: 20180125
  61. FOLINIC ACID [Suspect]
     Active Substance: LEUCOVORIN
     Indication: ADENOCARCINOMA GASTRIC
     Dosage: 636 UNK
     Route: 042
     Dates: start: 20180322, end: 20180322
  62. OXALIPLATIN. [Suspect]
     Active Substance: OXALIPLATIN
     Indication: ADENOCARCINOMA GASTRIC
     Dosage: 636 MG, UNK
     Route: 042
     Dates: start: 20170511, end: 20170511
  63. OXALIPLATIN. [Suspect]
     Active Substance: OXALIPLATIN
     Indication: ADENOCARCINOMA GASTRIC
     Dosage: 636 MG, UNK
     Route: 042
     Dates: start: 20170302, end: 20170302
  64. CENTRUM A TO ZINC [Concomitant]
     Dosage: UNK
     Dates: start: 20180105
  65. ADDEL N [CHROMIC CHLORIDE;COPPER CHLORIDE DIHYDRATE;FERRIC CHLORIDE... [Concomitant]
     Dosage: UNK
     Dates: start: 20180406, end: 20180406
  66. MOVICOL [Concomitant]
     Active Substance: POLYETHYLENE GLYCOL 3350\POTASSIUM CHLORIDE\SODIUM BICARBONATE\SODIUM CHLORIDE
     Dosage: UNK
     Dates: start: 2007
  67. FLUOROURACIL. [Suspect]
     Active Substance: FLUOROURACIL
     Indication: ADENOCARCINOMA GASTRIC
     Dosage: 636 MG, UNK
     Route: 042
     Dates: start: 20170302, end: 20170302
  68. FLUOROURACIL. [Suspect]
     Active Substance: FLUOROURACIL
     Indication: ADENOCARCINOMA GASTRIC
     Dosage: 636 UNK
     Route: 042
     Dates: start: 20180405, end: 20180405
  69. FLUOROURACIL. [Suspect]
     Active Substance: FLUOROURACIL
     Indication: ADENOCARCINOMA GASTRIC
     Dosage: 636 MG, UNK
     Route: 042
     Dates: start: 20171128, end: 20171128
  70. FLUOROURACIL. [Suspect]
     Active Substance: FLUOROURACIL
     Indication: ADENOCARCINOMA GASTRIC
     Dosage: 636 UNK
     Route: 042
     Dates: start: 20170316, end: 20170316
  71. FLUOROURACIL. [Suspect]
     Active Substance: FLUOROURACIL
     Indication: ADENOCARCINOMA GASTRIC
     Dosage: 636 UNK
     Route: 042
     Dates: start: 20170302, end: 20170302
  72. FLUOROURACIL. [Suspect]
     Active Substance: FLUOROURACIL
     Indication: ADENOCARCINOMA GASTRIC
     Dosage: 3816 UNK
     Route: 042
     Dates: start: 20180308, end: 20180310
  73. FLUOROURACIL. [Suspect]
     Active Substance: FLUOROURACIL
     Indication: ADENOCARCINOMA GASTRIC
     Dosage: 3816 UNK
     Route: 042
     Dates: start: 20170711, end: 20170713
  74. FLUOROURACIL. [Suspect]
     Active Substance: FLUOROURACIL
     Indication: ADENOCARCINOMA GASTRIC
     Dosage: 636 UNK
     Route: 042
     Dates: start: 20171101, end: 20171101
  75. FOLINIC ACID [Suspect]
     Active Substance: LEUCOVORIN
     Indication: ADENOCARCINOMA GASTRIC
     Dosage: 636 UNK
     Route: 042
     Dates: start: 20170613, end: 20170613
  76. FOLINIC ACID [Suspect]
     Active Substance: LEUCOVORIN
     Indication: ADENOCARCINOMA GASTRIC
     Dosage: 636 MG, UNK
     Route: 042
     Dates: start: 20171017, end: 20171017
  77. FOLINIC ACID [Suspect]
     Active Substance: LEUCOVORIN
     Indication: ADENOCARCINOMA GASTRIC
     Dosage: 636 MG, UNK
     Route: 042
     Dates: start: 20170330, end: 20170330
  78. FOLINIC ACID [Suspect]
     Active Substance: LEUCOVORIN
     Indication: ADENOCARCINOMA GASTRIC
     Dosage: 636 MG, UNK
     Route: 042
     Dates: start: 20171114, end: 20171114
  79. OXALIPLATIN. [Suspect]
     Active Substance: OXALIPLATIN
     Indication: ADENOCARCINOMA GASTRIC
     Dosage: 636 UNK
     Route: 042
     Dates: start: 20170711, end: 20170711
  80. FLUOROURACIL. [Suspect]
     Active Substance: FLUOROURACIL
     Indication: ADENOCARCINOMA GASTRIC
     Dosage: 636 UNK
     Route: 042
     Dates: start: 20171004, end: 20171004
  81. FLUOROURACIL. [Suspect]
     Active Substance: FLUOROURACIL
     Indication: ADENOCARCINOMA GASTRIC
     Dosage: 636 UNK
     Route: 042
     Dates: start: 20170330, end: 20170401
  82. FLUOROURACIL. [Suspect]
     Active Substance: FLUOROURACIL
     Indication: ADENOCARCINOMA GASTRIC
     Dosage: 636 UNK
     Route: 042
     Dates: start: 20180222, end: 20180224
  83. FLUOROURACIL. [Suspect]
     Active Substance: FLUOROURACIL
     Indication: ADENOCARCINOMA GASTRIC
     Dosage: 636 UNK
     Route: 042
     Dates: start: 20170919, end: 20170921
  84. FLUOROURACIL. [Suspect]
     Active Substance: FLUOROURACIL
     Indication: ADENOCARCINOMA GASTRIC
     Dosage: 636 UNK
     Route: 042
     Dates: start: 20171212, end: 20171214
  85. FLUOROURACIL. [Suspect]
     Active Substance: FLUOROURACIL
     Indication: ADENOCARCINOMA GASTRIC
     Dosage: 636 MG, UNK
     Route: 042
     Dates: start: 20170725, end: 20170725
  86. FLUOROURACIL. [Suspect]
     Active Substance: FLUOROURACIL
     Indication: ADENOCARCINOMA GASTRIC
     Dosage: 636 UNK
     Route: 042
     Dates: start: 20171004, end: 20171006
  87. FLUOROURACIL. [Suspect]
     Active Substance: FLUOROURACIL
     Indication: ADENOCARCINOMA GASTRIC
     Dosage: 3816 UNK
     Route: 042
     Dates: start: 20170427, end: 20170429
  88. FLUOROURACIL. [Suspect]
     Active Substance: FLUOROURACIL
     Indication: ADENOCARCINOMA GASTRIC
     Dosage: 636 UNK
     Route: 042
     Dates: start: 20180222, end: 20180222
  89. FLUOROURACIL. [Suspect]
     Active Substance: FLUOROURACIL
     Indication: ADENOCARCINOMA GASTRIC
     Dosage: 3816 UNK
     Route: 042
     Dates: start: 20170413, end: 20170415
  90. FOLINIC ACID [Suspect]
     Active Substance: LEUCOVORIN
     Indication: ADENOCARCINOMA GASTRIC
     Dosage: 636 UNK
     Route: 042
     Dates: start: 20170302, end: 20170302
  91. FOLINIC ACID [Suspect]
     Active Substance: LEUCOVORIN
     Indication: ADENOCARCINOMA GASTRIC
     Dosage: 636 UNK
     Route: 042
     Dates: start: 20180208, end: 20180208
  92. FOLINIC ACID [Suspect]
     Active Substance: LEUCOVORIN
     Indication: ADENOCARCINOMA GASTRIC
     Dosage: 636 UNK
     Route: 042
     Dates: start: 20171212, end: 20171212
  93. FOLINIC ACID [Suspect]
     Active Substance: LEUCOVORIN
     Indication: ADENOCARCINOMA GASTRIC
     Dosage: 636 UNK
     Route: 042
     Dates: start: 20170511, end: 20170511
  94. OXALIPLATIN. [Suspect]
     Active Substance: OXALIPLATIN
     Indication: ADENOCARCINOMA GASTRIC
     Dosage: UNK
     Route: 042
     Dates: start: 20170627, end: 20170627
  95. OXALIPLATIN. [Suspect]
     Active Substance: OXALIPLATIN
     Indication: ADENOCARCINOMA GASTRIC
     Dosage: 636 UNK
     Route: 042
     Dates: start: 20170613, end: 20170613
  96. OXALIPLATIN. [Suspect]
     Active Substance: OXALIPLATIN
     Indication: ADENOCARCINOMA GASTRIC
     Dosage: 636 UNK
     Route: 042
     Dates: start: 20170725, end: 20170725
  97. LYRICA [Concomitant]
     Active Substance: PREGABALIN
     Dosage: UNK
     Dates: start: 20180110
  98. FENTANYL. [Concomitant]
     Active Substance: FENTANYL
     Dosage: UNK
     Dates: start: 20170227
  99. KREON [Concomitant]
     Active Substance: PANCRELIPASE
     Dosage: UNK
     Dates: start: 20150603
  100. MAGNESIUM [Concomitant]
     Active Substance: MAGNESIUM
     Dosage: UNK
     Dates: start: 19980101
  101. FLUOROURACIL. [Suspect]
     Active Substance: FLUOROURACIL
     Indication: ADENOCARCINOMA GASTRIC
     Dosage: UNK
     Route: 042
     Dates: start: 20180405, end: 20180407
  102. FLUOROURACIL. [Suspect]
     Active Substance: FLUOROURACIL
     Indication: ADENOCARCINOMA GASTRIC
     Dosage: 636 UNK
     Route: 042
     Dates: start: 20170725, end: 20170727
  103. FLUOROURACIL. [Suspect]
     Active Substance: FLUOROURACIL
     Indication: ADENOCARCINOMA GASTRIC
     Dosage: 636 UNK
     Route: 042
     Dates: start: 20171114, end: 20171116
  104. FLUOROURACIL. [Suspect]
     Active Substance: FLUOROURACIL
     Indication: ADENOCARCINOMA GASTRIC
     Dosage: 636 MG, UNK
     Route: 042
     Dates: start: 20170427, end: 20170427
  105. FLUOROURACIL. [Suspect]
     Active Substance: FLUOROURACIL
     Indication: ADENOCARCINOMA GASTRIC
     Dosage: 636 UNK
     Route: 042
     Dates: start: 20170627, end: 20170627
  106. FLUOROURACIL. [Suspect]
     Active Substance: FLUOROURACIL
     Indication: ADENOCARCINOMA GASTRIC
     Dosage: 636 UNK
     Route: 042
     Dates: start: 20171101, end: 20171103
  107. PANTOPRAZOLE [Concomitant]
     Active Substance: PANTOPRAZOLE
     Dosage: UNK
     Dates: start: 20170215

REACTIONS (1)
  - Hip fracture [Recovered/Resolved]

NARRATIVE: CASE EVENT DATE: 20180506
